FAERS Safety Report 6472371-6 (Version None)
Quarter: 2009Q4

REPORT INFORMATION
  Report Type: 
  Country: None (occurrence: None)
  Receive Date: 20091130
  Receipt Date: 20091111
  Transmission Date: 20100525
  Serious: Yes (Hospitalization)
  Sender: FDA-Public Use
  Company Number: 1000006360

PATIENT
  Age: 66 Year
  Sex: Female
  Weight: 90 kg

DRUGS (15)
  1. ESCITALOPRAM [Suspect]
     Dosage: 20 MG (20 MG,  1 IN 1 D),ORAL
     Route: 048
     Dates: start: 20090318, end: 20090406
  2. ESCITALOPRAM [Suspect]
     Dosage: 10 MG (10 MG,1 IN 1 D),ORAL
     Route: 048
     Dates: start: 20090216, end: 20090317
  3. ESCITALOPRAM [Suspect]
     Dosage: 10 MG (10 MG,1 IN 1 D),ORAL
     Route: 048
     Dates: start: 20090407
  4. EDRONAX (TABLETS) [Suspect]
     Dosage: 4 MG (4 MG, 4 IN 1 D),ORAL
     Route: 048
     Dates: start: 20090217, end: 20090316
  5. EDRONAX (TABLETS) [Suspect]
     Dosage: 8 MG (8 MG, 1 IN 1 D),ORAL
     Dates: start: 20090317, end: 20090404
  6. WELLBUTRIN [Suspect]
     Dosage: 150 MG (150 MG, 1 IN 1 D), ORAL
     Route: 048
     Dates: start: 20090317, end: 20090326
  7. TEMESTA (TABLETS) [Suspect]
     Dosage: SEE IMAGE
     Route: 048
     Dates: start: 20090323, end: 20090323
  8. TEMESTA (TABLETS) [Suspect]
     Dosage: SEE IMAGE
     Route: 048
     Dates: start: 20090324, end: 20090324
  9. TEMESTA (TABLETS) [Suspect]
     Dosage: SEE IMAGE
     Route: 048
     Dates: start: 20090325, end: 20090325
  10. TEMESTA (TABLETS) [Suspect]
     Dosage: SEE IMAGE
     Route: 048
     Dates: start: 20090326, end: 20090326
  11. TEMESTA (TABLETS) [Suspect]
     Dosage: SEE IMAGE
     Route: 048
     Dates: start: 20090327
  12. TEGRETOL [Concomitant]
  13. FOSICOMB (TABLETS) [Concomitant]
  14. NORVASC [Concomitant]
  15. LOVENOX [Concomitant]

REACTIONS (5)
  - BLOOD SODIUM DECREASED [None]
  - DELIRIUM [None]
  - DRUG LEVEL DECREASED [None]
  - HALLUCINATION [None]
  - URINARY INCONTINENCE [None]
